FAERS Safety Report 7225702-3 (Version None)
Quarter: 2011Q1

REPORT INFORMATION
  Report Type: 
  Country: None (occurrence: None)
  Receive Date: 20110113
  Receipt Date: 20110107
  Transmission Date: 20110831
  Serious: Yes (Death)
  Sender: FDA-Public Use
  Company Number: CN-GENZYME-FLUD-1000611

PATIENT

DRUGS (3)
  1. FLUDARA [Suspect]
     Indication: NON-HODGKIN'S LYMPHOMA UNSPECIFIED HISTOLOGY INDOLENT
     Dosage: 30 MG/M2, QD DAY 1-3
     Route: 042
  2. MITOXANTRONE [Suspect]
     Indication: NON-HODGKIN'S LYMPHOMA UNSPECIFIED HISTOLOGY INDOLENT
     Dosage: 10 MG, QD ON DAY 1
     Route: 042
  3. DEXAMETHASONE [Suspect]
     Indication: NON-HODGKIN'S LYMPHOMA UNSPECIFIED HISTOLOGY INDOLENT
     Dosage: 20 MG, QD ON DAY 1-5
     Route: 042

REACTIONS (1)
  - LUNG INFECTION [None]
